FAERS Safety Report 9094019 (Version 1)
Quarter: 2013Q1

REPORT INFORMATION
  Report Type: Spontaneous
  Country: US (occurrence: None)
  Receive Date: 20130122
  Receipt Date: 20130122
  Transmission Date: 20140127
  Serious: Yes (Death)
  Sender: FDA-Public Use
  Company Number: DSA_61963_2013

PATIENT
  Age: 56 Year
  Sex: Female

DRUGS (4)
  1. DILTIAZEM HYDROCHLORIDE [Suspect]
     Indication: SUICIDE ATTEMPT
     Route: 048
  2. METOPROLOL [Suspect]
     Indication: SUICIDE ATTEMPT
     Route: 048
  3. PARACETAMOL [Suspect]
     Indication: SUICIDE ATTEMPT
     Route: 048
  4. LISINOPRIL [Suspect]
     Indication: SUICIDE ATTEMPT
     Route: 048

REACTIONS (3)
  - Completed suicide [None]
  - Intentional drug misuse [None]
  - Toxicity to various agents [None]
